FAERS Safety Report 9115663 (Version 1)
Quarter: 2013Q1

REPORT INFORMATION
  Report Type: Spontaneous
  Country: JP (occurrence: JP)
  Receive Date: 20130225
  Receipt Date: 20130225
  Transmission Date: 20140127
  Serious: Yes (Death)
  Sender: FDA-Public Use
  Company Number: JP-BAXTER-2013BAX006477

PATIENT
  Sex: Male

DRUGS (3)
  1. DIANEAL-N PD-2 1.5 PD SOLUTION [Suspect]
     Indication: GLOMERULONEPHRITIS CHRONIC
     Route: 033
     Dates: start: 20050916, end: 20130216
  2. DIANEAL-N PD-2 2.5 PD SOLUTION [Suspect]
     Indication: GLOMERULONEPHRITIS CHRONIC
     Route: 033
     Dates: start: 20050916, end: 20130216
  3. EXTRANEAL PD SOLUTION [Suspect]
     Indication: GLOMERULONEPHRITIS CHRONIC
     Route: 033
     Dates: start: 20050916, end: 20130216

REACTIONS (1)
  - Subdural haematoma [Fatal]
